FAERS Safety Report 8043619-1 (Version None)
Quarter: 2012Q1

REPORT INFORMATION
  Report Type: 
  Country: None (occurrence: None)
  Receive Date: 20120112
  Receipt Date: 20111028
  Transmission Date: 20120608
  Serious: Yes (Other)
  Sender: FDA-Public Use
  Company Number: PHHY2011IR106823

PATIENT
  Age: 49 Year
  Sex: Male

DRUGS (6)
  1. CYCLOSPORINE [Suspect]
     Indication: RENAL TRANSPLANT
     Dosage: 225 MG BID
     Route: 048
  2. ISONIAZID [Concomitant]
  3. PREDNISONE [Concomitant]
  4. VITAMIN B6 [Concomitant]
  5. CYCLOSPORINE [Suspect]
     Dosage: 150 MG BID
     Route: 048
  6. MYCOPHENOLATE MOFETIL [Concomitant]

REACTIONS (15)
  - ASTHENIA [None]
  - TOXICITY TO VARIOUS AGENTS [None]
  - HYPOPHOSPHATAEMIA [None]
  - HYPOKINESIA [None]
  - NEUROTOXICITY [None]
  - BLOOD PARATHYROID HORMONE INCREASED [None]
  - DIABETES MELLITUS [None]
  - MUSCLE ATROPHY [None]
  - THROMBOCYTOPENIA [None]
  - IMMUNOSUPPRESSANT DRUG LEVEL INCREASED [None]
  - HYPOREFLEXIA [None]
  - CYTOMEGALOVIRUS INFECTION [None]
  - GUILLAIN-BARRE SYNDROME [None]
  - MUSCULAR WEAKNESS [None]
  - PERIPHERAL SENSORY NEUROPATHY [None]
